FAERS Safety Report 5979854-3 (Version None)
Quarter: 2008Q4

REPORT INFORMATION
  Report Type: 
  Country: None (occurrence: None)
  Receive Date: 20081205
  Receipt Date: 20081126
  Transmission Date: 20090506
  Serious: Yes (Hospitalization)
  Sender: FDA-Public Use
  Company Number: DE-WYE-G01348708

PATIENT
  Sex: Female
  Weight: 81.5 kg

DRUGS (5)
  1. TREVILOR RETARD [Suspect]
     Indication: DEPRESSION
     Route: 048
     Dates: start: 19980101
  2. TREVILOR RETARD [Suspect]
     Route: 048
  3. TREVILOR RETARD [Suspect]
     Route: 048
  4. TREVILOR RETARD [Suspect]
     Dosage: UNKNOWN DOSE
     Route: 048
  5. TREVILOR RETARD [Suspect]
     Route: 048

REACTIONS (7)
  - BRONCHITIS CHRONIC [None]
  - CARDIOMEGALY [None]
  - DRUG EFFECT DECREASED [None]
  - DRUG WITHDRAWAL SYNDROME [None]
  - HYPERHIDROSIS [None]
  - HYPERTENSION [None]
  - MUSCULAR WEAKNESS [None]
